FAERS Safety Report 5238124-1 (Version None)
Quarter: 2007Q1

REPORT INFORMATION
  Report Type: 
  Country: None (occurrence: None)
  Receive Date: 20070215
  Receipt Date: 20070202
  Transmission Date: 20070707
  Serious: Yes (Hospitalization, Other)
  Sender: FDA-Public Use
  Company Number: PHBS2007BR02269

PATIENT
  Age: 84 Year
  Sex: Female

DRUGS (4)
  1. DIOVAN AMLO [Suspect]
     Indication: HYPERTENSION
     Dosage: VLAS 160 / AMLO 5 MG/DAY
     Route: 048
  2. SOMALGIN [Concomitant]
     Route: 048
  3. LASIX [Concomitant]
     Indication: DIURETIC THERAPY
     Dosage: 1 TABLET/DAY
     Route: 048
  4. DAFLON [Concomitant]
     Dosage: 1 TABLET/DAY
     Route: 048

REACTIONS (2)
  - ARRHYTHMIA [None]
  - BLOOD PRESSURE INCREASED [None]
